FAERS Safety Report 4973702-6 (Version None)
Quarter: 2006Q2

REPORT INFORMATION
  Report Type: 
  Country: None (occurrence: None)
  Receive Date: 20060414
  Receipt Date: 20050125
  Transmission Date: 20061013
  Serious: Yes (Hospitalization, Other)
  Sender: FDA-Public Use
  Company Number: US-MERCK-0501USA03955

PATIENT
  Age: 60 Year
  Sex: Male
  Weight: 86 kg

DRUGS (10)
  1. VIOXX [Suspect]
     Indication: BACK PAIN
     Route: 048
     Dates: start: 20030312, end: 20030301
  2. VIOXX [Suspect]
     Route: 048
     Dates: start: 20030301, end: 20030301
  3. VIOXX [Suspect]
     Route: 048
     Dates: start: 20030301, end: 20030401
  4. VIOXX [Suspect]
     Route: 048
     Dates: start: 20030401, end: 20031001
  5. PREVACID [Concomitant]
     Route: 065
  6. VICODIN [Suspect]
     Route: 065
  7. ULTRACET [Concomitant]
     Route: 065
  8. ASPIRIN [Concomitant]
     Route: 065
  9. PRILOSEC [Concomitant]
     Route: 048
  10. NEXIUM [Concomitant]
     Route: 065

REACTIONS (27)
  - ANGINA PECTORIS [None]
  - ANXIETY [None]
  - AORTIC ARTERIOSCLEROSIS [None]
  - ARTHRALGIA [None]
  - BACK INJURY [None]
  - CONGESTIVE CARDIOMYOPATHY [None]
  - CORONARY ARTERY DISEASE [None]
  - DILATATION ATRIAL [None]
  - DILATATION VENTRICULAR [None]
  - DRUG INTERACTION [None]
  - ELECTROCARDIOGRAM ST SEGMENT DEPRESSION [None]
  - HEPATIC ENZYME INCREASED [None]
  - HYPERCHOLESTEROLAEMIA [None]
  - HYPERTENSION [None]
  - INSOMNIA [None]
  - MITRAL VALVE INCOMPETENCE [None]
  - MITRAL VALVE PROLAPSE [None]
  - MYOCARDIAL ISCHAEMIA [None]
  - NAUSEA [None]
  - PAIN IN EXTREMITY [None]
  - PARAESTHESIA [None]
  - SILENT MYOCARDIAL INFARCTION [None]
  - STOMACH DISCOMFORT [None]
  - TRICUSPID VALVE DISEASE [None]
  - TRICUSPID VALVE INCOMPETENCE [None]
  - VENTRICULAR HYPERTROPHY [None]
  - VENTRICULAR HYPOKINESIA [None]
